FAERS Safety Report 4974750-2 (Version None)
Quarter: 2006Q1

REPORT INFORMATION
  Report Type: 
  Country: None (occurrence: None)
  Receive Date: 20060216
  Receipt Date: 20060106
  Transmission Date: 20060701
  Serious: Yes (Death)
  Sender: FDA-Public Use
  Company Number: PHEH2006US00644

PATIENT
  Age: 84 Year
  Sex: Male

DRUGS (1)
  1. GLEEVEC [Suspect]
     Indication: GASTRIC CANCER STAGE IV
     Dosage: 100 MG, QD4SDO, ORAL
     Route: 048
     Dates: start: 20051220, end: 20051221

REACTIONS (2)
  - HALLUCINATION [None]
  - MALIGNANT NEOPLASM PROGRESSION [None]
